FAERS Safety Report 13635623 (Version 6)
Quarter: 2019Q4

REPORT INFORMATION
  Report Type: Spontaneous
  Country: NL (occurrence: NL)
  Receive Date: 20170609
  Receipt Date: 20191015
  Transmission Date: 20200122
  Serious: Yes (Hospitalization, Other)
  Sender: FDA-Public Use
  Company Number: NL-AUROBINDO-AUR-APL-2010-02872

PATIENT
  Age: 64 Year
  Sex: Female

DRUGS (2)
  1. PARACETAMOL DISPERSABLE TABLET [Suspect]
     Active Substance: ACETAMINOPHEN
     Indication: PRODUCT USED FOR UNKNOWN INDICATION
     Dosage: 50 GRAM, TOTAL
     Route: 048
  2. CODEINE [Suspect]
     Active Substance: CODEINE
     Indication: PRODUCT USED FOR UNKNOWN INDICATION
     Dosage: 5 GRAM, TOTAL
     Route: 048

REACTIONS (9)
  - Hepatic failure [Recovered/Resolved]
  - Alanine aminotransferase increased [Recovered/Resolved]
  - Loss of consciousness [Recovered/Resolved]
  - Hypothermia [Recovered/Resolved]
  - Intentional overdose [Unknown]
  - Coma scale abnormal [Unknown]
  - Poisoning [Unknown]
  - Blood lactic acid increased [Recovered/Resolved]
  - Overdose [Recovered/Resolved]
